FAERS Safety Report 7321214-7 (Version None)
Quarter: 2011Q1

REPORT INFORMATION
  Report Type: 
  Country: None (occurrence: None)
  Receive Date: 20110228
  Receipt Date: 20110222
  Transmission Date: 20110831
  Serious: Yes (Other)
  Sender: FDA-Public Use
  Company Number: US-ABBOTT-11P-163-0707087-00

PATIENT
  Age: 62 Year
  Sex: Female

DRUGS (11)
  1. HUMIRA [Suspect]
     Indication: RHEUMATOID ARTHRITIS
     Dates: start: 20080101
  2. PRAVASTATIN [Concomitant]
     Indication: BLOOD CHOLESTEROL INCREASED
  3. AMBIEN [Concomitant]
     Indication: INSOMNIA
  4. HUMIRA [Suspect]
     Indication: ANKYLOSING SPONDYLITIS
  5. HYDROCODONE BITARTRATE [Concomitant]
     Indication: PAIN
     Dosage: 7.5-150 MG AS NEEDED
  6. DIGOXIN [Concomitant]
     Indication: PRODUCT USED FOR UNKNOWN INDICATION
  7. PROPAFENONE HCL [Concomitant]
     Indication: ATRIAL FIBRILLATION
     Dosage: 1/2 TAB; 3 IN 1 DAY
  8. LOSARTAN POTASSIUM [Concomitant]
     Indication: HYPERTENSION
  9. HYDROCHLOROTHIAZIDE [Concomitant]
     Indication: PRODUCT USED FOR UNKNOWN INDICATION
  10. ALEVE [Concomitant]
     Indication: PAIN
  11. PREVACID [Concomitant]
     Indication: GASTROOESOPHAGEAL REFLUX DISEASE

REACTIONS (5)
  - JOINT EFFUSION [None]
  - HYPERTENSION [None]
  - SHOULDER OPERATION [None]
  - TOOTHACHE [None]
  - PAIN IN JAW [None]
